FAERS Safety Report 19881618 (Version 1)
Quarter: 2021Q3

REPORT INFORMATION
  Report Type: Spontaneous
  Country: IT (occurrence: IT)
  Receive Date: 20210924
  Receipt Date: 20210924
  Transmission Date: 20211014
  Serious: Yes (Other)
  Sender: FDA-Public Use
  Company Number: IT-SLATE RUN PHARMACEUTICALS-21IT000685

PATIENT

DRUGS (2)
  1. CINACALCET HYDROCHLORIDE. [Suspect]
     Active Substance: CINACALCET HYDROCHLORIDE
     Indication: BONE PAIN
     Dosage: 30 MILLIGRAM, QD
  2. CINACALCET HYDROCHLORIDE. [Suspect]
     Active Substance: CINACALCET HYDROCHLORIDE
     Indication: HYPERPARATHYROIDISM SECONDARY
     Dosage: 120 MILLIGRAM, QD

REACTIONS (6)
  - Drug effect less than expected [Unknown]
  - Blood alkaline phosphatase increased [Recovered/Resolved]
  - Anaemia [Recovering/Resolving]
  - Bone lesion [Recovering/Resolving]
  - Treatment noncompliance [Unknown]
  - Hyperparathyroidism [Recovering/Resolving]
